FAERS Safety Report 22211908 (Version 2)
Quarter: 2023Q2

REPORT INFORMATION
  Report Type: Report from Study
  Country: CA (occurrence: CA)
  Receive Date: 20230414
  Receipt Date: 20230509
  Transmission Date: 20230721
  Serious: Yes (Other)
  Sender: FDA-Public Use
  Company Number: CA-OTSUKA-2022_020968

PATIENT
  Sex: Male

DRUGS (2)
  1. ARIPIPRAZOLE [Suspect]
     Active Substance: ARIPIPRAZOLE
     Indication: Product used for unknown indication
     Dosage: 400 MG, EVERY 28 DAYS/ EVERY 4 WEEKS
     Route: 030
  2. ARIPIPRAZOLE [Suspect]
     Active Substance: ARIPIPRAZOLE
     Dosage: 400 MG, EVERY 3 WEEKS (EVERY 21 DAYS)
     Route: 030

REACTIONS (11)
  - Hallucination, visual [Unknown]
  - Paranoia [Unknown]
  - Micturition urgency [Unknown]
  - Mobility decreased [Unknown]
  - Hypokinesia [Unknown]
  - Urinary incontinence [Unknown]
  - Depression [Unknown]
  - Product dose omission issue [Unknown]
  - Product availability issue [Unknown]
  - Poor personal hygiene [Unknown]
  - Inappropriate schedule of product administration [Unknown]
